FAERS Safety Report 8274413-4 (Version None)
Quarter: 2012Q2

REPORT INFORMATION
  Report Type: 
  Country: None (occurrence: None)
  Receive Date: 20120411
  Receipt Date: 20120409
  Transmission Date: 20120825
  Serious: No
  Sender: FDA-Public Use
  Company Number: US-PFIZER INC-2012078284

PATIENT
  Sex: Female

DRUGS (2)
  1. IBUPROFEN [Suspect]
     Dosage: UNK
  2. NAPROXEN (ALEVE) [Suspect]
     Dosage: UNK

REACTIONS (2)
  - NAUSEA [None]
  - VOMITING [None]
